FAERS Safety Report 24915489 (Version 1)
Quarter: 2025Q1

REPORT INFORMATION
  Report Type: Spontaneous
  Country: US (occurrence: US)
  Receive Date: 20250203
  Receipt Date: 20250203
  Transmission Date: 20250408
  Serious: Yes (Death, Other)
  Sender: BAXTER
  Company Number: US-BAXTER-2025BAX010978

PATIENT
  Age: 47 Year
  Sex: Male
  Weight: 70.748 kg

DRUGS (1)
  1. SODIUM CHLORIDE [Suspect]
     Active Substance: SODIUM CHLORIDE
     Route: 065
     Dates: start: 20250109

REACTIONS (1)
  - Death [Fatal]

NARRATIVE: CASE EVENT DATE: 20250110
